FAERS Safety Report 12969839 (Version 2)
Quarter: 2017Q1

REPORT INFORMATION
  Report Type: Spontaneous
  Country: JP (occurrence: JP)
  Receive Date: 20161123
  Receipt Date: 20170127
  Transmission Date: 20170428
  Serious: Yes (Other)
  Sender: FDA-Public Use
  Company Number: JP-SA-2016SA210507

PATIENT
  Age: 66 Year
  Sex: Male

DRUGS (3)
  1. RECOMODULIN [Concomitant]
     Active Substance: THROMBOMODULIN ALFA
     Dates: start: 20160522
  2. FLUDARABINE PHOSPHATE. [Suspect]
     Active Substance: FLUDARABINE PHOSPHATE
     Indication: ACUTE MYELOID LEUKAEMIA
     Dosage: DAY 1-5
     Route: 065
     Dates: start: 20160523, end: 20160524
  3. CYTARABINE. [Suspect]
     Active Substance: CYTARABINE
     Indication: ACUTE MYELOID LEUKAEMIA
     Dosage: DAYS 1-5
     Route: 065
     Dates: start: 20160523, end: 20160525

REACTIONS (2)
  - Haemorrhage intracranial [Unknown]
  - Off label use [Unknown]

NARRATIVE: CASE EVENT DATE: 201605
